FAERS Safety Report 9053589 (Version 1)
Quarter: 2013Q1

REPORT INFORMATION
  Report Type: Spontaneous
  Country: DE (occurrence: DE)
  Receive Date: 20130208
  Receipt Date: 20130208
  Transmission Date: 20140127
  Serious: Yes (Other)
  Sender: FDA-Public Use
  Company Number: DE-JNJFOC-20130113526

PATIENT
  Age: 25 Year
  Sex: Male
  Weight: 75 kg

DRUGS (7)
  1. REMICADE [Suspect]
     Indication: CROHN^S DISEASE
     Route: 042
     Dates: start: 20120312
  2. REMICADE [Suspect]
     Indication: CROHN^S DISEASE
     Route: 042
     Dates: start: 20121203
  3. AZATHIOPRINE [Concomitant]
     Indication: CROHN^S DISEASE
     Route: 065
     Dates: start: 20120507
  4. CIPROFLOXACIN [Concomitant]
     Indication: CROHN^S DISEASE
     Route: 065
     Dates: start: 20121120, end: 20121130
  5. METRONIDAZOLE [Concomitant]
     Indication: CROHN^S DISEASE
     Route: 065
     Dates: start: 20121120, end: 20121130
  6. URBASON [Concomitant]
     Indication: PREMEDICATION
     Route: 042
     Dates: start: 20121203
  7. ALL OTHER THERAPEUTICS [Concomitant]
     Indication: PREMEDICATION
     Route: 042
     Dates: start: 20121203

REACTIONS (11)
  - Hypersensitivity [Unknown]
  - Cardiovascular disorder [Unknown]
  - Hypotension [Recovered/Resolved]
  - Bradycardia [Recovered/Resolved]
  - Chest pain [Recovered/Resolved]
  - Dyspnoea [Recovered/Resolved]
  - Myalgia [Recovered/Resolved]
  - Infusion related reaction [Recovered/Resolved]
  - Headache [Recovered/Resolved]
  - Urticaria [Recovered/Resolved]
  - Rash [Recovered/Resolved]
